FAERS Safety Report 6295083-0 (Version None)
Quarter: 2009Q3

REPORT INFORMATION
  Report Type: 
  Country: None (occurrence: None)
  Receive Date: 20090803
  Receipt Date: 20090721
  Transmission Date: 20100115
  Serious: Yes (Other)
  Sender: FDA-Public Use
  Company Number: JP-GENENTECH-281477

PATIENT
  Sex: Male

DRUGS (4)
  1. AVASTIN [Suspect]
     Indication: COLON CANCER METASTATIC
     Dosage: 5 MG/KG, QD
     Route: 041
     Dates: start: 20081104, end: 20090317
  2. ELPLAT [Suspect]
     Indication: COLON CANCER METASTATIC
     Dosage: 130 MG, Q2W
     Route: 041
     Dates: start: 20080922, end: 20090317
  3. CALCIUM LEVOFOLINATE [Suspect]
     Indication: COLON CANCER METASTATIC
     Dosage: 300 MG, Q2W
     Route: 041
     Dates: start: 20080922, end: 20090318
  4. FLUOROURACIL [Suspect]
     Indication: COLON CANCER METASTATIC
     Dosage: 600 MG, Q2W
     Dates: start: 20080922, end: 20090319

REACTIONS (1)
  - EOSINOPHILIC PNEUMONIA [None]
